FAERS Safety Report 18577461 (Version 1)
Quarter: 2020Q4

REPORT INFORMATION
  Report Type: Report from Study
  Country: None (occurrence: NL)
  Receive Date: 20201203
  Receipt Date: 20201203
  Transmission Date: 20210114
  Serious: Yes (Death)
  Sender: FDA-Public Use
  Company Number: NL-ABBVIE-20K-114-3674956-00

PATIENT
  Sex: Female

DRUGS (2)
  1. DUODOPA [Suspect]
     Active Substance: CARBIDOPA\LEVODOPA
     Indication: PARKINSON^S DISEASE
     Dosage: MD: 12.0 ML; CD: 6.1 ML/H; ED: 3.7 ML: CND: 3.7 ML/H
     Route: 050
     Dates: start: 20160309
  2. DUODOPA [Suspect]
     Active Substance: CARBIDOPA\LEVODOPA
     Dosage: MD: 12.0 ML; CD: 6.3 ML/H; ED: 3.7 ML: CND: 3.7 ML/H
     Route: 050

REACTIONS (1)
  - Parkinson^s disease [Fatal]
